FAERS Safety Report 24641778 (Version 4)
Quarter: 2025Q1

REPORT INFORMATION
  Report Type: Spontaneous
  Country: CA (occurrence: CA)
  Receive Date: 20241120
  Receipt Date: 20250131
  Transmission Date: 20250409
  Serious: Yes (Other)
  Sender: PFIZER
  Company Number: CA-PFIZER INC-202400300968

PATIENT
  Age: 63 Year
  Sex: Female

DRUGS (10)
  1. ABRILADA [Suspect]
     Active Substance: ADALIMUMAB-AFZB
     Indication: Psoriasis
     Route: 058
     Dates: start: 20220711
  2. ABRILADA [Suspect]
     Active Substance: ADALIMUMAB-AFZB
     Dosage: UNK, WEEKLY
     Route: 058
     Dates: start: 20241111
  3. ABRILADA [Suspect]
     Active Substance: ADALIMUMAB-AFZB
     Dosage: 40 MG, WEEKLY
     Route: 058
  4. ABRILADA [Suspect]
     Active Substance: ADALIMUMAB-AFZB
     Dates: start: 20241202
  5. VITAMIN D NOS [Concomitant]
     Active Substance: CHOLECALCIFEROL\ERGOCALCIFEROL
     Route: 065
  6. CALCIUM [Concomitant]
     Active Substance: CALCIUM
     Route: 065
  7. RIVA PERINDOPRIL [Concomitant]
     Route: 065
  8. ISOPTIN [Concomitant]
     Active Substance: VERAPAMIL HYDROCHLORIDE
     Route: 065
  9. PROLIA [Concomitant]
     Active Substance: DENOSUMAB
     Route: 065
  10. METHOTREXATE [Concomitant]
     Active Substance: METHOTREXATE
     Indication: Psoriasis
     Route: 065
     Dates: start: 2012, end: 2013

REACTIONS (7)
  - Device failure [Unknown]
  - Incorrect dose administered by device [Unknown]
  - Therapeutic product effect decreased [Unknown]
  - Wound [Unknown]
  - Injection site pain [Unknown]
  - Herpes zoster [Recovering/Resolving]
  - Off label use [Unknown]

NARRATIVE: CASE EVENT DATE: 20241111
